FAERS Safety Report 12041342 (Version 4)
Quarter: 2019Q1

REPORT INFORMATION
  Report Type: Report from Study
  Country: CA (occurrence: CA)
  Receive Date: 20160208
  Receipt Date: 20190118
  Transmission Date: 20190417
  Serious: Yes (Hospitalization, Other)
  Sender: FDA-Public Use
  Company Number: CA-JNJFOC-20160202772

PATIENT
  Age: 55 Year
  Sex: Female
  Weight: 79 kg

DRUGS (9)
  1. REMICADE [Suspect]
     Active Substance: INFLIXIMAB
     Indication: RHEUMATOID ARTHRITIS
     Route: 042
     Dates: start: 20040101, end: 20160202
  2. REMICADE [Suspect]
     Active Substance: INFLIXIMAB
     Indication: RHEUMATOID ARTHRITIS
     Dosage: EVERY 7-9 WEEKS
     Route: 042
     Dates: start: 20040708
  3. REMICADE [Suspect]
     Active Substance: INFLIXIMAB
     Indication: RHEUMATOID ARTHRITIS
     Dosage: EVERY 7-9 WEEKS
     Route: 042
     Dates: start: 201512
  4. GABAPENTIN. [Concomitant]
     Active Substance: GABAPENTIN
     Route: 065
  5. TRAMADOL. [Concomitant]
     Active Substance: TRAMADOL
     Route: 065
  6. REMICADE [Suspect]
     Active Substance: INFLIXIMAB
     Indication: RHEUMATOID ARTHRITIS
     Route: 042
     Dates: start: 20130401
  7. FRAGMIN [Concomitant]
     Active Substance: DALTEPARIN SODIUM
     Route: 065
  8. ADVIL [Concomitant]
     Active Substance: IBUPROFEN
     Route: 065
  9. TYLENOL [Concomitant]
     Active Substance: ACETAMINOPHEN
     Indication: PREMEDICATION
     Route: 065

REACTIONS (9)
  - Arthralgia [Not Recovered/Not Resolved]
  - Joint stiffness [Not Recovered/Not Resolved]
  - Product use issue [Unknown]
  - Chronic obstructive pulmonary disease [Unknown]
  - Metastatic renal cell carcinoma [Unknown]
  - Wound complication [Recovered/Resolved]
  - Off label use [Unknown]
  - Lung neoplasm malignant [Unknown]
  - Upper respiratory tract infection [Unknown]

NARRATIVE: CASE EVENT DATE: 20130401
